FAERS Safety Report 6235390-0 (Version None)
Quarter: 2009Q2

REPORT INFORMATION
  Report Type: 
  Country: None (occurrence: None)
  Receive Date: 20090618
  Receipt Date: 20081027
  Transmission Date: 20091009
  Serious: No
  Sender: FDA-Public Use
  Company Number: US-ASTRAZENECA-2008UW23917

PATIENT
  Age: 70 Year
  Sex: Female

DRUGS (2)
  1. ENTOCORT EC [Suspect]
     Indication: COLITIS
     Dosage: 9 MG
     Route: 048
     Dates: start: 20080901
  2. ENTOCORT EC [Suspect]
     Dosage: 6 MG
     Route: 048
     Dates: start: 20080101

REACTIONS (2)
  - BLOOD PRESSURE FLUCTUATION [None]
  - DYSPEPSIA [None]
